FAERS Safety Report 9063266 (Version 1)
Quarter: 2013Q1

REPORT INFORMATION
  Report Type: Spontaneous
  Country: PL (occurrence: PL)
  Receive Date: 20130213
  Receipt Date: 20130213
  Transmission Date: 20140127
  Serious: Yes (Hospitalization)
  Sender: FDA-Public Use
  Company Number: PL-GLAXOSMITHKLINE-B0867129A

PATIENT
  Age: 31 Year
  Sex: Female

DRUGS (3)
  1. HYDROXYCARBAMIDE [Suspect]
     Indication: PRODUCT USED FOR UNKNOWN INDICATION
     Route: 065
  2. PAROXETINE [Suspect]
     Indication: PRODUCT USED FOR UNKNOWN INDICATION
     Dosage: 100MG PER DAY
     Route: 065
  3. DIAZEPAM [Suspect]
     Indication: PRODUCT USED FOR UNKNOWN INDICATION
     Dosage: 50MG PER DAY
     Route: 065

REACTIONS (6)
  - Poisoning [Unknown]
  - Suicide attempt [Unknown]
  - Intentional overdose [Unknown]
  - Restlessness [Unknown]
  - Depressed mood [Unknown]
  - White blood cell count decreased [Unknown]
